FAERS Safety Report 25530977 (Version 1)
Quarter: 2025Q3

REPORT INFORMATION
  Report Type: Spontaneous
  Country: US (occurrence: US)
  Receive Date: 20250708
  Receipt Date: 20250708
  Transmission Date: 20251021
  Serious: Yes (Death)
  Sender: ZEALAND PHARMACEUTICALS
  Company Number: US-ZPPROD-ZP25US001107

PATIENT
  Age: 65 Year
  Sex: Male

DRUGS (2)
  1. ZEGALOGUE [Suspect]
     Active Substance: DASIGLUCAGON
     Indication: Product used for unknown indication
     Route: 065
  2. OZEMPIC [Suspect]
     Active Substance: SEMAGLUTIDE
     Route: 065

REACTIONS (1)
  - Death [Fatal]

NARRATIVE: CASE EVENT DATE: 20250117
